FAERS Safety Report 26111730 (Version 3)
Quarter: 2025Q4

REPORT INFORMATION
  Report Type: Spontaneous
  Country: AU (occurrence: AU)
  Receive Date: 20251202
  Receipt Date: 20251226
  Transmission Date: 20260117
  Serious: Yes (Life-Threatening, Other)
  Sender: TEVA
  Company Number: AU-TEVA-VS-3398493

PATIENT
  Age: 18 Year
  Sex: Female

DRUGS (1)
  1. TESTOSTERONE [Suspect]
     Active Substance: TESTOSTERONE
     Indication: Transgender hormonal therapy
     Route: 030
     Dates: start: 202402

REACTIONS (2)
  - Cerebral venous sinus thrombosis [Recovering/Resolving]
  - Product use in unapproved indication [Unknown]
